FAERS Safety Report 6490486-3 (Version None)
Quarter: 2009Q4

REPORT INFORMATION
  Report Type: 
  Country: None (occurrence: None)
  Receive Date: 20091210
  Receipt Date: 20091210
  Transmission Date: 20100525
  Serious: Yes (Death)
  Sender: FDA-Public Use
  Company Number: None

PATIENT
  Sex: Male

DRUGS (2)
  1. GENGRAF [Suspect]
     Dosage: 3 TABS TWICE A DAY BY MOUTH JUST FILLED ON 11/13/09DOSE DECR
     Route: 048
  2. FUROSEMIDE 20MG [Suspect]
     Dosage: 1 TAB IN AM BY MOUTH JUST FILLED ON 11/13/09
     Route: 048

REACTIONS (1)
  - RENAL TRANSPLANT [None]
